FAERS Safety Report 14345382 (Version 2)
Quarter: 2018Q1

REPORT INFORMATION
  Report Type: Spontaneous
  Country: US (occurrence: US)
  Receive Date: 20180103
  Receipt Date: 20180216
  Transmission Date: 20180509
  Serious: Yes (Other)
  Sender: FDA-Public Use
  Company Number: US-LUPIN (EUROPE) LIMITED-2017-07563

PATIENT
  Sex: Female
  Weight: 90.7 kg

DRUGS (4)
  1. LISINOPRIL TABLETS USP, 20MG [Suspect]
     Active Substance: LISINOPRIL
     Indication: HYPERTENSION
     Dosage: 20 MG, BID
     Route: 048
  2. LISINOPRIL TABLETS USP, 20MG [Suspect]
     Active Substance: LISINOPRIL
     Dosage: UNK (LARGER TABLETS)
     Route: 048
  3. LISINOPRIL TABLETS USP, 20MG [Suspect]
     Active Substance: LISINOPRIL
     Dosage: 20 MG, BID
     Route: 048
  4. LISINOPRIL TABLETS USP, 20MG [Suspect]
     Active Substance: LISINOPRIL
     Dosage: 20 MG, BID (SMALLER TABLETS)
     Route: 048

REACTIONS (7)
  - Drug ineffective [Recovered/Resolved]
  - Tongue dry [Not Recovered/Not Resolved]
  - Dizziness [Not Recovered/Not Resolved]
  - Hypertension [Recovered/Resolved]
  - Dysphagia [Not Recovered/Not Resolved]
  - Palpitations [Not Recovered/Not Resolved]
  - Dry mouth [Not Recovered/Not Resolved]
